FAERS Safety Report 12726670 (Version 2)
Quarter: 2016Q4

REPORT INFORMATION
  Report Type: Spontaneous
  Country: US (occurrence: US)
  Receive Date: 20160908
  Receipt Date: 20161123
  Transmission Date: 20170207
  Serious: Yes (Hospitalization)
  Sender: FDA-Public Use
  Company Number: US-RELYPSA-RLY2016002255

PATIENT
  Age: 76 Year
  Sex: Male

DRUGS (17)
  1. AMLODIPINE BESYLATE. [Concomitant]
     Active Substance: AMLODIPINE BESYLATE
  2. ASPIRIN. [Concomitant]
     Active Substance: ASPIRIN
  3. ATORVASTATIN CALCIUM. [Concomitant]
     Active Substance: ATORVASTATIN CALCIUM
  4. CARVEDILOL. [Concomitant]
     Active Substance: CARVEDILOL
  5. VELPHORO [Concomitant]
     Active Substance: FERRIC OXYHYDROXIDE
  6. VITAMINS NOS [Concomitant]
     Active Substance: VITAMINS
  7. NITROGLYCERIN. [Concomitant]
     Active Substance: NITROGLYCERIN
  8. OMEPRAZOLE. [Concomitant]
     Active Substance: OMEPRAZOLE
  9. LOSARTAN POTASSIUM. [Concomitant]
     Active Substance: LOSARTAN POTASSIUM
  10. VELTASSA [Suspect]
     Active Substance: PATIROMER
     Indication: HYPERKALAEMIA
     Dosage: 8.4 G, QD
     Route: 048
  11. COLACE [Concomitant]
     Active Substance: DOCUSATE SODIUM
  12. HUMALOG [Concomitant]
     Active Substance: INSULIN LISPRO
  13. VITAMIN D3 [Concomitant]
     Active Substance: CHOLECALCIFEROL
  14. FUROSEMIDE. [Concomitant]
     Active Substance: FUROSEMIDE
  15. TRAMADOL HCL [Concomitant]
     Active Substance: TRAMADOL HYDROCHLORIDE
  16. GLYBURIDE (MICRONIZED) [Concomitant]
  17. PLAVIX [Concomitant]
     Active Substance: CLOPIDOGREL BISULFATE

REACTIONS (1)
  - Pneumonia [Recovered/Resolved]

NARRATIVE: CASE EVENT DATE: 20160818
